FAERS Safety Report 6557836-0 (Version None)
Quarter: 2010Q1

REPORT INFORMATION
  Report Type: 
  Country: None (occurrence: None)
  Receive Date: 20100128
  Receipt Date: 20100128
  Transmission Date: 20100710
  Serious: Yes (Other)
  Sender: FDA-Public Use
  Company Number: None

PATIENT
  Sex: Female
  Weight: 92.0802 kg

DRUGS (1)
  1. WELLBUTRIN SR [Suspect]
     Dosage: 150MG BID PO
     Route: 048
     Dates: start: 20100105, end: 20100115

REACTIONS (1)
  - VOMITING [None]
